FAERS Safety Report 7498871-8 (Version None)
Quarter: 2011Q2

REPORT INFORMATION
  Report Type: 
  Country: None (occurrence: None)
  Receive Date: 20110524
  Receipt Date: 20110512
  Transmission Date: 20111010
  Serious: Yes (Hospitalization, Other)
  Sender: FDA-Public Use
  Company Number: MX-BAYER-201011772LA

PATIENT
  Age: 25 Year
  Sex: Female

DRUGS (4)
  1. YASMIN [Suspect]
     Route: 048
     Dates: start: 20091201, end: 20100220
  2. YASMIN [Suspect]
     Indication: CONTRACEPTION
     Route: 048
     Dates: start: 20090801, end: 20091201
  3. YASMIN [Suspect]
     Indication: DYSMENORRHOEA
  4. YASMIN [Suspect]

REACTIONS (7)
  - OEDEMA [None]
  - BURNING SENSATION [None]
  - EYE PRURITUS [None]
  - DERMATITIS ALLERGIC [None]
  - RASH [None]
  - ANAPHYLACTIC SHOCK [None]
  - TONGUE OEDEMA [None]
